FAERS Safety Report 21224554 (Version 1)
Quarter: 2022Q3

REPORT INFORMATION
  Report Type: Spontaneous
  Country: US (occurrence: US)
  Receive Date: 20220817
  Receipt Date: 20220817
  Transmission Date: 20221027
  Serious: No
  Sender: FDA-Public Use
  Company Number: US-OTSUKA-2022_028323

PATIENT
  Age: 30 Year
  Sex: Male

DRUGS (1)
  1. ABILIFY MAINTENA [Suspect]
     Active Substance: ARIPIPRAZOLE
     Indication: Bipolar disorder
     Dosage: 400 MG
     Route: 030
     Dates: end: 2022

REACTIONS (1)
  - Therapeutic response shortened [Unknown]
